FAERS Safety Report 7081534-0 (Version None)
Quarter: 2010Q4

REPORT INFORMATION
  Report Type: 
  Country: None (occurrence: None)
  Receive Date: 20101103
  Receipt Date: 20101019
  Transmission Date: 20110411
  Serious: Yes (Hospitalization)
  Sender: FDA-Public Use
  Company Number: US-MERCK-1010USA02212

PATIENT
  Age: 59 Year
  Sex: Female

DRUGS (6)
  1. PRINIVIL [Suspect]
     Route: 048
  2. METFORMIN [Suspect]
     Route: 065
  3. CIMETIDINE [Suspect]
     Route: 065
  4. FENOFIBRATE [Suspect]
     Route: 065
  5. FLUVASTATIN SODIUM [Suspect]
     Route: 065
  6. ATENOLOL [Suspect]
     Route: 065

REACTIONS (4)
  - DRUG INTERACTION [None]
  - LACTIC ACIDOSIS [None]
  - PANCREATITIS ACUTE [None]
  - RENAL FAILURE ACUTE [None]
